FAERS Safety Report 21927234 (Version 3)
Quarter: 2023Q1

REPORT INFORMATION
  Report Type: Report from Study
  Country: US (occurrence: US)
  Receive Date: 20230130
  Receipt Date: 20230329
  Transmission Date: 20230418
  Serious: Yes (Other)
  Sender: FDA-Public Use
  Company Number: US-ABBVIE-4284679

PATIENT
  Age: 41 Year
  Sex: Female
  Weight: 106.59 kg

DRUGS (2)
  1. HUMIRA [Suspect]
     Active Substance: ADALIMUMAB
     Indication: Uveitis
     Dosage: CITRATE FREE
     Route: 058
     Dates: start: 20221115
  2. CELLCEPT [Concomitant]
     Active Substance: MYCOPHENOLATE MOFETIL
     Indication: Uveitis

REACTIONS (9)
  - Retinal haemorrhage [Recovering/Resolving]
  - Uveitis [Recovering/Resolving]
  - Migraine [Recovered/Resolved]
  - Ocular hyperaemia [Recovered/Resolved]
  - Visual field defect [Not Recovered/Not Resolved]
  - Visual impairment [Recovered/Resolved]
  - Eye pain [Recovered/Resolved]
  - Lacrimation increased [Recovered/Resolved]
  - Eye contusion [Recovered/Resolved]

NARRATIVE: CASE EVENT DATE: 20230101
